FAERS Safety Report 13460994 (Version 2)
Quarter: 2017Q3

REPORT INFORMATION
  Report Type: Spontaneous
  Country: BR (occurrence: BR)
  Receive Date: 20170420
  Receipt Date: 20170828
  Transmission Date: 20171127
  Serious: Yes (Other)
  Sender: FDA-Public Use
  Company Number: BR-TORRENT-00003942

PATIENT
  Age: 63 Year
  Sex: Female
  Weight: 82 kg

DRUGS (7)
  1. PURAN [Concomitant]
     Active Substance: LEVOTHYROXINE SODIUM
  2. LOTAR [Concomitant]
     Active Substance: AMLODIPINE\LOSARTAN
  3. ACETYLSALICYLIC ACID [Concomitant]
     Active Substance: ASPIRIN
  4. GALVUS [Concomitant]
     Active Substance: VILDAGLIPTIN
  5. PIOGLIT [Suspect]
     Active Substance: PIOGLITAZONE HYDROCHLORIDE
  6. MERITOR [Concomitant]
     Active Substance: GLIMEPIRIDE\METFORMIN
  7. CALCIUM [Concomitant]
     Active Substance: CALCIUM

REACTIONS (14)
  - Dry throat [Not Recovered/Not Resolved]
  - Lip dry [Not Recovered/Not Resolved]
  - Pruritus [Recovered/Resolved]
  - Blood blister [Recovered/Resolved]
  - Musculoskeletal pain [Not Recovered/Not Resolved]
  - Headache [Not Recovered/Not Resolved]
  - Chest pain [Recovered/Resolved]
  - Cataract [Not Recovered/Not Resolved]
  - Abdominal distension [Recovered/Resolved]
  - Abdominal pain upper [Recovered/Resolved]
  - Vision blurred [Not Recovered/Not Resolved]
  - Swelling face [Recovered/Resolved]
  - Eye pruritus [Not Recovered/Not Resolved]
  - Dry mouth [Not Recovered/Not Resolved]

NARRATIVE: CASE EVENT DATE: 201703
